FAERS Safety Report 6243455-2 (Version None)
Quarter: 2009Q2

REPORT INFORMATION
  Report Type: 
  Country: None (occurrence: None)
  Receive Date: 20090624
  Receipt Date: 20090613
  Transmission Date: 20091009
  Serious: Yes (Hospitalization, Other)
  Sender: FDA-Public Use
  Company Number: US-AVENTIS-200915227US

PATIENT
  Sex: Male

DRUGS (2)
  1. LANTUS [Suspect]
     Dosage: DOSE QUANTITY: 45
     Route: 058
     Dates: start: 20050101
  2. OPTICLIK (INSULIN INJECTION PEN) [Suspect]
     Dosage: DOSE: UNK

REACTIONS (4)
  - DIZZINESS [None]
  - LITHOTRIPSY [None]
  - RENAL HAEMORRHAGE [None]
  - TRANSIENT ISCHAEMIC ATTACK [None]
